FAERS Safety Report 8558471-5 (Version None)
Quarter: 2012Q3

REPORT INFORMATION
  Report Type: 
  Country: None (occurrence: None)
  Receive Date: 20120801
  Receipt Date: 20120723
  Transmission Date: 20120928
  Serious: Yes (Other)
  Sender: FDA-Public Use
  Company Number: US-009507513-1207USA010538

PATIENT

DRUGS (2)
  1. ZOCOR [Suspect]
     Dosage: 20 MG, QPM
  2. LISINOPRIL [Suspect]
     Dosage: 5 MG, BID

REACTIONS (7)
  - SOMNOLENCE [None]
  - PAIN [None]
  - FATIGUE [None]
  - HAEMATOCHEZIA [None]
  - DIARRHOEA [None]
  - ASTHENIA [None]
  - MEMORY IMPAIRMENT [None]
